FAERS Safety Report 16977141 (Version 1)
Quarter: 2019Q4

REPORT INFORMATION
  Report Type: Spontaneous
  Country: CN (occurrence: CN)
  Receive Date: 20191030
  Receipt Date: 20191030
  Transmission Date: 20200122
  Serious: Yes (Hospitalization, Other)
  Sender: FDA-Public Use
  Company Number: NVSC2019CN016583

PATIENT

DRUGS (3)
  1. MYFORTIC [Suspect]
     Active Substance: MYCOPHENOLATE SODIUM
     Dosage: UNK UNK, BID (O.54 G IN MORNING AND 0.36G IN NIGHT)
     Route: 065
  2. MYFORTIC [Suspect]
     Active Substance: MYCOPHENOLATE SODIUM
     Indication: RENAL TRANSPLANT
     Dosage: UNK
     Route: 048
  3. MYFORTIC [Suspect]
     Active Substance: MYCOPHENOLATE SODIUM
     Dosage: UNK UNK, BID (0.36G IN MORNING AND 0.18G IN NIGHT)
     Route: 065

REACTIONS (5)
  - Abdominal discomfort [Unknown]
  - Upper gastrointestinal haemorrhage [Recovering/Resolving]
  - Renal injury [Unknown]
  - Blood creatinine increased [Recovering/Resolving]
  - Transplant rejection [Unknown]

NARRATIVE: CASE EVENT DATE: 20190220
